FAERS Safety Report 4585920-X (Version None)
Quarter: 2005Q1

REPORT INFORMATION
  Report Type: 
  Country: None (occurrence: None)
  Receive Date: 20050214
  Receipt Date: 20041222
  Transmission Date: 20050727
  Serious: Yes (Hospitalization)
  Sender: FDA-Public Use
  Company Number: APP200400923

PATIENT
  Age: 31 Year
  Sex: Female

DRUGS (1)
  1. CHORIONIC GONDATROPIN FOR INJECTION USP (CHORIONIC GONADOTROPHIN) [Suspect]
     Indication: INFERTILITY
     Dosage: INJECTION
     Dates: start: 20020801

REACTIONS (1)
  - RETINAL ARTERY OCCLUSION [None]
